FAERS Safety Report 24453412 (Version 1)
Quarter: 2024Q4

REPORT INFORMATION
  Report Type: Spontaneous
  Country: US (occurrence: US)
  Receive Date: 20241017
  Receipt Date: 20241017
  Transmission Date: 20250115
  Serious: Yes (Other)
  Sender: SUNOVION
  Company Number: US-UROVANT SCIENCES GMBH-202407-URV-001031

PATIENT
  Sex: Female

DRUGS (1)
  1. GEMTESA [Suspect]
     Active Substance: VIBEGRON
     Indication: Pollakiuria
     Dosage: UNK
     Route: 065
     Dates: start: 202311

REACTIONS (5)
  - Urinary retention [Unknown]
  - Burning sensation [Unknown]
  - Pain [Unknown]
  - Malaise [Unknown]
  - Urine output decreased [Unknown]
